FAERS Safety Report 7247462-2 (Version None)
Quarter: 2011Q1

REPORT INFORMATION
  Report Type: 
  Country: None (occurrence: None)
  Receive Date: 20110127
  Receipt Date: 20101014
  Transmission Date: 20110831
  Serious: No
  Sender: FDA-Public Use
  Company Number: US-BAYER-201022590BCC

PATIENT
  Age: 74 Year
  Sex: Female
  Weight: 57.273 kg

DRUGS (2)
  1. ALEVE [Suspect]
     Indication: ARTHRALGIA
     Dosage: BOTTLE COUNT 80S
     Route: 048
  2. LISINOPRILHYDROCHLOROTHIAZIDE RATIOPHARM [Concomitant]

REACTIONS (1)
  - ARTHRALGIA [None]
